FAERS Safety Report 21531799 (Version 4)
Quarter: 2022Q4

REPORT INFORMATION
  Report Type: Spontaneous
  Country: CA (occurrence: CA)
  Receive Date: 20221101
  Receipt Date: 20221228
  Transmission Date: 20230113
  Serious: Yes (Other)
  Sender: FDA-Public Use
  Company Number: CA-CELLTRION INC.-2022CA001443

PATIENT

DRUGS (4)
  1. INFLECTRA [Suspect]
     Active Substance: INFLIXIMAB-DYYB
     Indication: Colitis ulcerative
     Dosage: 400 MG, 0, 2, 6  THEN EVERY 8 WEEKS
     Route: 042
     Dates: start: 20211108, end: 20211122
  2. INFLECTRA [Suspect]
     Active Substance: INFLIXIMAB-DYYB
     Dosage: UNK
     Route: 042
     Dates: start: 20211122
  3. INFLECTRA [Suspect]
     Active Substance: INFLIXIMAB-DYYB
     Dosage: 400 MG, RE-INDUCTION: AT 0, 2, 6 THEN EVERY 8 WEEKS
     Route: 042
     Dates: start: 20221026
  4. INFLECTRA [Suspect]
     Active Substance: INFLIXIMAB-DYYB
     Dosage: 400 MG, RE-INDUCTION: AT 0, 2, 6 THEN EVERY 8 WEEKS
     Route: 042
     Dates: start: 20221209

REACTIONS (4)
  - Condition aggravated [Unknown]
  - Therapeutic product effect decreased [Unknown]
  - Off label use [Unknown]
  - Cough [Recovering/Resolving]

NARRATIVE: CASE EVENT DATE: 20220101
